FAERS Safety Report 16451842 (Version 1)
Quarter: 2019Q2

REPORT INFORMATION
  Report Type: Report from Study
  Country: US (occurrence: US)
  Receive Date: 20190619
  Receipt Date: 20190619
  Transmission Date: 20190711
  Serious: Yes (Death)
  Sender: FDA-Public Use
  Company Number: US-PFIZER INC-2019261591

PATIENT
  Sex: Male

DRUGS (5)
  1. DIPHENHYDRAMINE. [Concomitant]
     Active Substance: DIPHENHYDRAMINE
     Indication: PREMEDICATION
     Dosage: 25 MG, UNK
  2. DOCETAXEL. [Suspect]
     Active Substance: DOCETAXEL
     Indication: PROSTATE CANCER METASTATIC
     Dosage: 30 MG/M2, CYCLIC, (OVER 60 MIN, ON DAYS 1, 8, 15, AND 22 IN 42- DAY CYCLES)
     Route: 042
  3. FAMOTIDINE. [Concomitant]
     Active Substance: FAMOTIDINE
     Indication: PREMEDICATION
     Dosage: 20 MG, UNK
  4. IMATINIB. [Suspect]
     Active Substance: IMATINIB MESYLATE
     Indication: PROSTATE CANCER METASTATIC
     Dosage: 600 MG, DAILY
     Route: 048
  5. DEXAMETHASONE. [Concomitant]
     Active Substance: DEXAMETHASONE
     Indication: PREMEDICATION
     Dosage: 20 MG, (BOLUS DOSE 30 MIN BEFORE DOCETAXEL)
     Route: 040

REACTIONS (2)
  - Diverticular perforation [Fatal]
  - Peritonitis [Fatal]
